FAERS Safety Report 7210915-7 (Version None)
Quarter: 2011Q1

REPORT INFORMATION
  Report Type: 
  Country: None (occurrence: None)
  Receive Date: 20110105
  Receipt Date: 20101228
  Transmission Date: 20110831
  Serious: Yes (Hospitalization)
  Sender: FDA-Public Use
  Company Number: FR-ABBOTT-10P-056-0694318-00

PATIENT
  Age: 3 Year
  Sex: Male

DRUGS (7)
  1. AUGMENTIN '125' [Suspect]
     Indication: PNEUMONIA ASPIRATION
     Route: 048
     Dates: start: 20100915, end: 20100925
  2. MICROPAKINE L.P. [Suspect]
     Route: 048
     Dates: start: 20080701, end: 20101001
  3. MICROPAKINE L.P. [Suspect]
     Indication: LENNOX-GASTAUT SYNDROME
     Route: 048
     Dates: start: 20101001
  4. RUFINAMIDE [Suspect]
     Route: 048
     Dates: start: 20100723, end: 20100920
  5. URBANYL [Suspect]
     Indication: LENNOX-GASTAUT SYNDROME
     Route: 048
     Dates: start: 20100226
  6. RUFINAMIDE [Suspect]
     Indication: LENNOX-GASTAUT SYNDROME
     Route: 048
     Dates: start: 20100920
  7. MICROPAKINE L.P. [Suspect]
     Route: 048
     Dates: start: 20080701, end: 20100201

REACTIONS (3)
  - COAGULATION FACTOR DECREASED [None]
  - VITAMIN K DEFICIENCY [None]
  - ECCHYMOSIS [None]
